FAERS Safety Report 5708786-0 (Version None)
Quarter: 2008Q2

REPORT INFORMATION
  Report Type: 
  Country: None (occurrence: None)
  Receive Date: 20080417
  Receipt Date: 20080408
  Transmission Date: 20081010
  Serious: Yes (Life-Threatening, Disabling)
  Sender: FDA-Public Use
  Company Number: AU-MERCK-0705AUS00174

PATIENT
  Age: 79 Year
  Sex: Female

DRUGS (7)
  1. SINGULAIR [Suspect]
     Indication: ASTHMA
     Route: 048
     Dates: start: 20070519, end: 20070524
  2. LUMIRACOXIB [Suspect]
     Indication: BONE PAIN
     Route: 048
     Dates: start: 20070523, end: 20070524
  3. CALCITRIOL [Concomitant]
     Route: 065
  4. PREDNISOLONE [Concomitant]
     Indication: POLYMYALGIA RHEUMATICA
     Route: 048
     Dates: start: 19980101
  5. CICLESONIDE [Concomitant]
     Indication: ASTHMA
     Route: 065
     Dates: start: 20050101
  6. ALBUTEROL SULFATE [Concomitant]
     Indication: ASTHMA
     Dates: start: 20020101
  7. IPRATROPIUM BROMIDE [Concomitant]
     Route: 065

REACTIONS (3)
  - ADVERSE EVENT [None]
  - ANAPHYLACTIC REACTION [None]
  - DRUG INTERACTION [None]
